FAERS Safety Report 14190019 (Version 2)
Quarter: 2017Q4

REPORT INFORMATION
  Report Type: Spontaneous
  Country: US (occurrence: US)
  Receive Date: 20171115
  Receipt Date: 20171120
  Transmission Date: 20180321
  Serious: No
  Sender: FDA-Public Use
  Company Number: US-PFIZER INC-2017486583

PATIENT
  Age: 5 Year
  Sex: Female
  Weight: 21.32 kg

DRUGS (1)
  1. ELELYSO [Suspect]
     Active Substance: TALIGLUCERASE ALFA
     Indication: GAUCHER^S DISEASE
     Dosage: UNKNOWN, RECEIVES INFUSION EVERY TWO WEEKS
     Dates: start: 20171020

REACTIONS (4)
  - Vomiting [Recovered/Resolved]
  - Pyrexia [Recovered/Resolved]
  - Visual impairment [Unknown]
  - Ear infection [Unknown]

NARRATIVE: CASE EVENT DATE: 2017
